FAERS Safety Report 5457343-2 (Version None)
Quarter: 2007Q3

REPORT INFORMATION
  Report Type: 
  Country: None (occurrence: None)
  Receive Date: 20070918
  Receipt Date: 20070219
  Transmission Date: 20080115
  Serious: No
  Sender: FDA-Public Use
  Company Number: US-ASTRAZENECA-2007UW03208

PATIENT
  Age: 44 Year
  Sex: Female

DRUGS (2)
  1. SEROQUEL [Suspect]
     Indication: ANXIETY
     Route: 048
     Dates: start: 20070101
  2. CLONOPIN [Concomitant]

REACTIONS (3)
  - DISORIENTATION [None]
  - DIZZINESS [None]
  - MEMORY IMPAIRMENT [None]
